FAERS Safety Report 19120364 (Version 1)
Quarter: 2021Q2

REPORT INFORMATION
  Report Type: Spontaneous
  Country: BR (occurrence: BR)
  Receive Date: 20210412
  Receipt Date: 20210412
  Transmission Date: 20210717
  Serious: Yes (Death)
  Sender: FDA-Public Use
  Company Number: BR-ASTELLAS-2021US012901

PATIENT
  Age: 6 Decade
  Sex: Male

DRUGS (1)
  1. XOSPATA [Suspect]
     Active Substance: GILTERITINIB
     Indication: ACUTE MYELOID LEUKAEMIA RECURRENT
     Dosage: UNK UNK, UNKNOWN FREQ.
     Route: 065
     Dates: start: 20200924

REACTIONS (1)
  - COVID-19 [Fatal]
